FAERS Safety Report 20861145 (Version 1)
Quarter: 2022Q2

REPORT INFORMATION
  Report Type: Spontaneous
  Country: US (occurrence: US)
  Receive Date: 20220523
  Receipt Date: 20220523
  Transmission Date: 20220721
  Serious: Yes (Other)
  Sender: FDA-Public Use
  Company Number: US-BRISTOL-MYERS SQUIBB COMPANY-2022-015115

PATIENT
  Age: 84 Year
  Sex: Female
  Weight: 48.53 kg

DRUGS (2)
  1. REVLIMID [Suspect]
     Active Substance: LENALIDOMIDE
     Indication: Plasma cell myeloma
     Dosage: 2W, 2W OFF
     Route: 048
     Dates: start: 20200901
  2. REVLIMID [Suspect]
     Active Substance: LENALIDOMIDE
     Dosage: 2W ON 2W OFF
     Route: 048
     Dates: start: 20200918

REACTIONS (2)
  - Poor peripheral circulation [Unknown]
  - Asthenia [Unknown]

NARRATIVE: CASE EVENT DATE: 20220211
